FAERS Safety Report 18776442 (Version 1)
Quarter: 2021Q1

REPORT INFORMATION
  Report Type: Spontaneous
  Country: NL (occurrence: NL)
  Receive Date: 20210123
  Receipt Date: 20210123
  Transmission Date: 20210419
  Serious: Yes (Life-Threatening, Hospitalization, Other)
  Sender: FDA-Public Use
  Company Number: NL-LUPIN PHARMACEUTICALS INC.-2021-00428

PATIENT
  Sex: Male

DRUGS (3)
  1. TRAMADOL HYDROCHLORIDE TABLET [Suspect]
     Active Substance: TRAMADOL HYDROCHLORIDE
     Indication: PRODUCT USED FOR UNKNOWN INDICATION
     Dosage: 60 DOSAGE FORM, SINGLE (TOTAL)
     Route: 065
     Dates: start: 2018
  2. LIDOCAINE. [Suspect]
     Active Substance: LIDOCAINE
     Indication: PRODUCT USED FOR UNKNOWN INDICATION
     Dosage: UNK
     Route: 065
  3. NICOTINE. [Suspect]
     Active Substance: NICOTINE
     Indication: PRODUCT USED FOR UNKNOWN INDICATION
     Dosage: UNK
     Route: 065

REACTIONS (4)
  - Intentional overdose [Unknown]
  - Loss of consciousness [Unknown]
  - Toxicity to various agents [Unknown]
  - Poisoning deliberate [Unknown]

NARRATIVE: CASE EVENT DATE: 2018
